FAERS Safety Report 18908593 (Version 4)
Quarter: 2021Q1

REPORT INFORMATION
  Report Type: Spontaneous
  Country: US (occurrence: US)
  Receive Date: 20210218
  Receipt Date: 20210312
  Transmission Date: 20210420
  Serious: Yes (Other)
  Sender: FDA-Public Use
  Company Number: US-009507513-2102USA003916

PATIENT
  Age: 68 Year
  Sex: Male

DRUGS (6)
  1. ASPIRIN. [Concomitant]
     Active Substance: ASPIRIN
     Dosage: UNK
  2. GLIPERIDE [Concomitant]
     Active Substance: GLIMEPIRIDE
     Dosage: UNK
  3. METOPROLOL. [Concomitant]
     Active Substance: METOPROLOL
     Dosage: UNK
  4. PRINIVIL [Concomitant]
     Active Substance: LISINOPRIL
     Dosage: UNK
  5. ZETIA [Concomitant]
     Active Substance: EZETIMIBE
     Dosage: UNK
  6. JANUMET [Suspect]
     Active Substance: METFORMIN HYDROCHLORIDE\SITAGLIPTIN PHOSPHATE
     Indication: TYPE 2 DIABETES MELLITUS
     Dosage: 1 TABLET TWICE DAILY, AT BREAKFAST AND DINNER; JANUMET 50/IO00MG 60 CT 00006057761
     Route: 048

REACTIONS (4)
  - Product coating issue [Unknown]
  - Foreign body in throat [Not Recovered/Not Resolved]
  - No adverse event [Unknown]
  - Dysphagia [Not Recovered/Not Resolved]

NARRATIVE: CASE EVENT DATE: 202012
